FAERS Safety Report 8169738-7 (Version None)
Quarter: 2012Q1

REPORT INFORMATION
  Report Type: 
  Country: None (occurrence: None)
  Receive Date: 20120228
  Receipt Date: 20120217
  Transmission Date: 20120608
  Serious: Yes (Hospitalization, Disabling, Other)
  Sender: FDA-Public Use
  Company Number: CA-JNJFOC-20111107502

PATIENT
  Sex: Female
  Weight: 120 kg

DRUGS (11)
  1. REMICADE [Suspect]
     Indication: CROHN'S DISEASE
     Dosage: FREQUENCY 0,2,6 WEEK
     Route: 042
     Dates: end: 20111222
  2. REMICADE [Suspect]
     Route: 042
     Dates: start: 20111110
  3. IMURAN [Concomitant]
     Route: 048
  4. GABAPENTIN [Concomitant]
  5. REMICADE [Suspect]
     Indication: COLITIS ULCERATIVE
     Dosage: FREQUENCY 0,2,6 WEEK
     Route: 042
     Dates: end: 20111222
  6. SOLU-MEDROL [Concomitant]
  7. ZOFRAN [Concomitant]
  8. CONTRACEPTIVE [Concomitant]
     Indication: CONTRACEPTION
     Route: 065
  9. SCOPOLAMINE [Concomitant]
  10. REMICADE [Suspect]
     Route: 042
     Dates: start: 20111110
  11. PREDNISONE [Concomitant]

REACTIONS (2)
  - OSTEONECROSIS [None]
  - ARTHRALGIA [None]
